FAERS Safety Report 9742653 (Version 2)
Quarter: 2013Q4

REPORT INFORMATION
  Report Type: Spontaneous
  Country: US (occurrence: US)
  Receive Date: 20131210
  Receipt Date: 20131210
  Transmission Date: 20140711
  Serious: No
  Sender: FDA-Public Use
  Company Number: US-GILEAD-2009-0024629

PATIENT
  Sex: Female
  Weight: 49.89 kg

DRUGS (13)
  1. LETAIRIS [Suspect]
     Indication: PULMONARY ARTERIAL HYPERTENSION
     Route: 048
     Dates: start: 20090921
  2. REVATIO [Concomitant]
  3. COREG [Concomitant]
  4. COUMADIN [Concomitant]
  5. CORDARONE [Concomitant]
  6. TYLENOL [Concomitant]
  7. DEMADEX [Concomitant]
  8. LANOXIN [Concomitant]
  9. PROPYLTHIOURACIL [Concomitant]
  10. KLOR-CON M20 [Concomitant]
  11. ZANTAC [Concomitant]
  12. BENADRYL [Concomitant]
  13. ALEVE [Concomitant]

REACTIONS (5)
  - Chest pain [Unknown]
  - Abdominal pain upper [Unknown]
  - Palpitations [Unknown]
  - Headache [Unknown]
  - Oedema peripheral [Unknown]
